FAERS Safety Report 13882454 (Version 14)
Quarter: 2017Q4

REPORT INFORMATION
  Report Type: Spontaneous
  Country: GB (occurrence: GB)
  Receive Date: 20170818
  Receipt Date: 20171225
  Transmission Date: 20180320
  Serious: Yes (Hospitalization, Other)
  Sender: FDA-Public Use
  Company Number: GB-SA-2017SA144696

PATIENT
  Sex: Female

DRUGS (4)
  1. FABRAZYME [Suspect]
     Active Substance: AGALSIDASE BETA
     Route: 041
     Dates: end: 20170720
  2. FABRAZYME [Suspect]
     Active Substance: AGALSIDASE BETA
     Route: 041
     Dates: start: 20171018, end: 20171123
  3. FABRAZYME [Suspect]
     Active Substance: AGALSIDASE BETA
     Route: 041
     Dates: start: 2017, end: 20170831
  4. FABRAZYME [Suspect]
     Active Substance: AGALSIDASE BETA
     Route: 041
     Dates: start: 20170922, end: 20170922

REACTIONS (25)
  - Gastrooesophageal reflux disease [Unknown]
  - Ovarian cyst [Unknown]
  - Vomiting [Unknown]
  - Vision blurred [Unknown]
  - Headache [Unknown]
  - Malaise [Unknown]
  - Bladder cancer [Unknown]
  - Weight decreased [Unknown]
  - Tearfulness [Not Recovered/Not Resolved]
  - Anger [Unknown]
  - Dizziness [Unknown]
  - Neoplasm [Unknown]
  - Dry mouth [Unknown]
  - Gastroenteritis viral [Unknown]
  - Coeliac artery compression syndrome [Unknown]
  - Decreased appetite [Unknown]
  - Hospitalisation [Unknown]
  - Emotional distress [Unknown]
  - Anxiety [Not Recovered/Not Resolved]
  - Back pain [Unknown]
  - Abdominal pain [Recovered/Resolved]
  - Nausea [Not Recovered/Not Resolved]
  - Depression [Unknown]
  - Thirst [Unknown]
  - Fatigue [Not Recovered/Not Resolved]

NARRATIVE: CASE EVENT DATE: 2017
